FAERS Safety Report 15563627 (Version 1)
Quarter: 2018Q4

REPORT INFORMATION
  Report Type: Spontaneous
  Country: US (occurrence: US)
  Receive Date: 20181029
  Receipt Date: 20181029
  Transmission Date: 20190205
  Serious: No
  Sender: FDA-Public Use
  Company Number: US-TEVA-2018-US-967736

PATIENT
  Sex: Female

DRUGS (1)
  1. ESTROPIPATE. [Suspect]
     Active Substance: ESTROPIPATE
     Route: 065
     Dates: end: 20181014

REACTIONS (2)
  - Dry eye [Unknown]
  - Wrong technique in product usage process [Unknown]

NARRATIVE: CASE EVENT DATE: 201810
